FAERS Safety Report 8928672 (Version 2)
Quarter: 2012Q4

REPORT INFORMATION
  Report Type: 
  Country: FI (occurrence: FI)
  Receive Date: 20121128
  Receipt Date: 20121213
  Transmission Date: 20130627
  Serious: Yes (Hospitalization, Other)
  Sender: FDA-Public Use
  Company Number: FI-AMGEN-FINSP2012074971

PATIENT
  Age: 67 Year
  Sex: Male
  Weight: 97 kg

DRUGS (12)
  1. XGEVA [Suspect]
     Indication: PROSTATE CANCER METASTATIC
     Dosage: 120 mg, UNK
     Route: 058
     Dates: start: 20121021, end: 20121021
  2. XGEVA [Suspect]
     Indication: METASTASES TO BONE
  3. EUCREAS [Concomitant]
     Indication: DIABETES MELLITUS
     Dosage: UNK UNK, bid
     Route: 048
     Dates: end: 20121106
  4. FINASTERID [Concomitant]
     Indication: BENIGN PROSTATIC HYPERPLASIA
     Dosage: 5 mg, bid
     Route: 048
     Dates: start: 20120404
  5. KALCIPOS-D [Concomitant]
     Indication: HYPOCALCAEMIA
     Dosage: 500 mg, bid
     Route: 048
     Dates: start: 20120528
  6. KALCIPOS-D [Concomitant]
     Dosage: 1000 mg, tid
     Dates: start: 20121115
  7. PANADOL FORTE [Concomitant]
     Indication: PAIN
     Dosage: 1 g, UNK
     Route: 048
     Dates: start: 20121019
  8. SOMAC [Concomitant]
     Indication: GASTRIC ULCER
     Dosage: 40 mg, qd
     Route: 048
     Dates: start: 20121021
  9. TAMSUMIN [Concomitant]
     Dosage: 0.4 mg, bid
     Route: 048
  10. LANTUS [Concomitant]
     Indication: TYPE 2 DIABETES MELLITUS
     Dosage: 30 unit, qd
     Route: 058
  11. NOVORAPID [Concomitant]
     Dosage: 11 unit, UNK
     Route: 058
  12. PROCREN [Concomitant]
     Dosage: 30 unit, q6mo
     Route: 058
     Dates: start: 201011

REACTIONS (4)
  - Hyperparathyroidism [Unknown]
  - Rhabdomyolysis [Unknown]
  - Infection [Unknown]
  - Hypocalcaemia [Not Recovered/Not Resolved]
